FAERS Safety Report 18320663 (Version 1)
Quarter: 2020Q3

REPORT INFORMATION
  Report Type: Spontaneous
  Country: US (occurrence: US)
  Receive Date: 20200928
  Receipt Date: 20200928
  Transmission Date: 20201103
  Serious: Yes (Hospitalization)
  Sender: FDA-Public Use
  Company Number: US-PFIZER INC-2020372171

PATIENT
  Age: 64 Year
  Sex: Male
  Weight: 104.3 kg

DRUGS (2)
  1. XELJANZ [Suspect]
     Active Substance: TOFACITINIB CITRATE
     Dosage: 10 MG, DAILY, (5MG 2 TABLETS DAILY)
     Route: 048
  2. XELJANZ [Suspect]
     Active Substance: TOFACITINIB CITRATE
     Indication: RHEUMATOID ARTHRITIS
     Dosage: 5 MG, DAILY
     Route: 048
     Dates: start: 201802

REACTIONS (5)
  - Pain [Unknown]
  - Depression [Unknown]
  - Intentional product misuse [Unknown]
  - Dysphonia [Unknown]
  - Polyp [Unknown]
